FAERS Safety Report 7222458-5 (Version None)
Quarter: 2011Q1

REPORT INFORMATION
  Report Type: 
  Country: None (occurrence: None)
  Receive Date: 20110112
  Receipt Date: 20101228
  Transmission Date: 20110831
  Serious: No
  Sender: FDA-Public Use
  Company Number: US-B.I. PHARMACEUTICALS,INC./RIDGEFIELD-2011-BP-00151BP

PATIENT
  Age: 75 Year
  Sex: Female

DRUGS (5)
  1. PRADAXA [Suspect]
     Indication: ATRIAL FIBRILLATION
     Dosage: 300 MG
     Route: 048
     Dates: start: 20101226
  2. PRADAXA [Suspect]
     Indication: PROPHYLAXIS
  3. PREDNISONE [Concomitant]
  4. OXYGEN [Concomitant]
  5. AVAPRO [Concomitant]

REACTIONS (2)
  - ANXIETY [None]
  - HYPERHIDROSIS [None]
